FAERS Safety Report 9454196 (Version 3)
Quarter: 2013Q4

REPORT INFORMATION
  Report Type: Spontaneous
  Country: US (occurrence: US)
  Receive Date: 20130812
  Receipt Date: 20131028
  Transmission Date: 20140711
  Serious: Yes (Life-Threatening, Hospitalization, Other)
  Sender: FDA-Public Use
  Company Number: US-BAYER-2013-095009

PATIENT
  Age: 23 Year
  Sex: Female
  Weight: 63.49 kg

DRUGS (3)
  1. MIRENA [Suspect]
     Indication: CONTRACEPTION
     Dosage: 20 MCG/24HR, CONT
     Route: 015
     Dates: start: 20071220, end: 20090807
  2. COLACE [Concomitant]
     Dosage: 100 MG, EVERY DAY AT BEDTIME AS NEEDED, TAKE 1 CAPSULE
     Route: 048
  3. ADVIL [Concomitant]
     Dosage: 200 MG, EVERY 6 HOURS AS NEEDED WITH FOOD, TAKE 1 TABLET
     Route: 048

REACTIONS (15)
  - Uterine perforation [None]
  - Infection [None]
  - Pregnancy with contraceptive device [None]
  - Injury [None]
  - Abdominal pain [None]
  - General physical health deterioration [None]
  - Anxiety [None]
  - Anhedonia [None]
  - Emotional distress [None]
  - Drug ineffective [None]
  - Depression [None]
  - Nerve injury [None]
  - Nausea [None]
  - Asthenia [None]
  - Menorrhagia [None]
